FAERS Safety Report 18154522 (Version 1)
Quarter: 2020Q3

REPORT INFORMATION
  Report Type: Spontaneous
  Country: US (occurrence: US)
  Receive Date: 20200817
  Receipt Date: 20200817
  Transmission Date: 20201103
  Serious: Yes (Disabling)
  Sender: FDA-Public Use
  Company Number: US-ROCHE-2658111

PATIENT
  Sex: Female
  Weight: 48.12 kg

DRUGS (9)
  1. BENADRYL [Suspect]
     Active Substance: DIPHENHYDRAMINE HYDROCHLORIDE
     Indication: PROPHYLAXIS
     Dosage: ONGOING: NO
     Route: 042
     Dates: start: 20200807, end: 20200807
  2. VALIUM [Suspect]
     Active Substance: DIAZEPAM
     Dosage: 2 MG BY MOUTH 3 TIMES DAILY ;ONGOING: YES
     Route: 048
  3. KEPPRA [Concomitant]
     Active Substance: LEVETIRACETAM
     Indication: FOCAL DYSCOGNITIVE SEIZURES
     Dosage: 1500 MG BY MOUTH TWICE DAILY ;ONGOING: YES
     Route: 048
  4. VALIUM [Suspect]
     Active Substance: DIAZEPAM
     Indication: FOCAL DYSCOGNITIVE SEIZURES
     Dosage: 10 MG BY MOUTH ONCE DAILY AT NIGHT ;ONGOING: NO
     Route: 048
  5. VALIUM [Suspect]
     Active Substance: DIAZEPAM
     Dosage: 5 MG BY MOUTH AS NEEDED FOR BREAKTHROUGH PAIN ;ONGOING: YES
     Route: 048
     Dates: start: 2002
  6. TOPAMAX [Concomitant]
     Active Substance: TOPIRAMATE
     Indication: FOCAL DYSCOGNITIVE SEIZURES
     Dosage: 100 MG BY MOUTH TWICE DAILY ;ONGOING: YES
     Route: 048
  7. SOLU?MEDROL [Suspect]
     Active Substance: METHYLPREDNISOLONE SODIUM SUCCINATE
     Indication: PROPHYLAXIS
     Dosage: ONGOING: NO
     Route: 042
     Dates: start: 20200807, end: 20200807
  8. ASPIRIN. [Concomitant]
     Active Substance: ASPIRIN
     Dosage: 81 MG BY MOUTH ONCE DAILY ;ONGOING: YES
     Route: 048
  9. IMMUNOGLOBULINS (IVIG) [Concomitant]
     Active Substance: HUMAN IMMUNOGLOBULIN G
     Indication: MULTIPLE SCLEROSIS
     Dosage: ONGOING: NO
     Dates: start: 2004, end: 202007

REACTIONS (3)
  - Headache [Not Recovered/Not Resolved]
  - Seizure [Not Recovered/Not Resolved]
  - Gait disturbance [Not Recovered/Not Resolved]

NARRATIVE: CASE EVENT DATE: 2006
